FAERS Safety Report 8163324-0 (Version None)
Quarter: 2012Q1

REPORT INFORMATION
  Report Type: 
  Country: None (occurrence: None)
  Receive Date: 20120224
  Receipt Date: 20110811
  Transmission Date: 20120608
  Serious: No
  Sender: FDA-Public Use
  Company Number: US-PFIZER INC-K201100940

PATIENT
  Sex: Male

DRUGS (2)
  1. FLECTOR [Suspect]
     Dosage: .5 PATCH, UNK
     Route: 061
  2. PROTONIX [Concomitant]
     Indication: GASTRIC DISORDER
     Dosage: UNK

REACTIONS (4)
  - MYALGIA [None]
  - JOINT EFFUSION [None]
  - RASH [None]
  - ARTHRALGIA [None]
